FAERS Safety Report 11554585 (Version 2)
Quarter: 2015Q4

REPORT INFORMATION
  Report Type: Spontaneous
  Country: US (occurrence: US)
  Receive Date: 20150925
  Receipt Date: 20151023
  Transmission Date: 20160304
  Serious: No
  Sender: FDA-Public Use
  Company Number: US-PFIZER INC-2015314289

PATIENT
  Age: 77 Year
  Sex: Female
  Weight: 71 kg

DRUGS (1)
  1. IBRANCE [Suspect]
     Active Substance: PALBOCICLIB
     Indication: BREAST CANCER
     Dosage: 125 MG, DAILY (FOR 21 DAYS AND 7 DAYS OFF)
     Route: 048
     Dates: start: 20150903

REACTIONS (2)
  - Dysgeusia [Unknown]
  - Fatigue [Unknown]

NARRATIVE: CASE EVENT DATE: 201509
